FAERS Safety Report 25644321 (Version 2)
Quarter: 2025Q3

REPORT INFORMATION
  Report Type: Spontaneous
  Country: EU (occurrence: EU)
  Receive Date: 20250805
  Receipt Date: 20250924
  Transmission Date: 20251021
  Serious: Yes (Hospitalization, Other)
  Sender: UCB
  Company Number: EU-UCBSA-2025047307

PATIENT
  Age: 58 Year
  Sex: Female
  Weight: 67 kg

DRUGS (1)
  1. BIMZELX [Suspect]
     Active Substance: BIMEKIZUMAB-BKZX
     Indication: Axial spondyloarthritis
     Route: 058
     Dates: start: 202403, end: 20250425

REACTIONS (4)
  - Extradural abscess [Not Recovered/Not Resolved]
  - Paraparesis [Unknown]
  - Gait disturbance [Unknown]
  - Spinal operation [Unknown]

NARRATIVE: CASE EVENT DATE: 20250101
